FAERS Safety Report 7325607-3 (Version None)
Quarter: 2011Q1

REPORT INFORMATION
  Report Type: 
  Country: None (occurrence: None)
  Receive Date: 20110302
  Receipt Date: 20110222
  Transmission Date: 20110831
  Serious: Yes (Death, Hospitalization, Other)
  Sender: FDA-Public Use
  Company Number: US-ELI_LILLY_AND_COMPANY-US201012001632

PATIENT
  Sex: Female

DRUGS (30)
  1. FORTEO [Suspect]
     Indication: OSTEOPOROSIS
     Dosage: 20 UG, DAILY (1/D)
     Dates: start: 20101108
  2. OXYCONTIN [Concomitant]
     Dosage: UNK, 2/D
  3. ASPIRIN [Concomitant]
     Dosage: 81 MG, UNK
  4. RESTASIS [Concomitant]
  5. SPIRIVA [Concomitant]
  6. FUROSEMIDE [Concomitant]
  7. POTASSIUM [Concomitant]
  8. PROPRANOLOL [Concomitant]
  9. DIAZEPAM [Concomitant]
  10. BENICAR [Concomitant]
  11. FORTEO [Suspect]
     Dosage: 20 UG, DAILY (1/D)
     Dates: end: 20110103
  12. LEXAPRO [Concomitant]
  13. PILOCARPINE [Concomitant]
  14. GABAPENTIN [Concomitant]
  15. METHOTREXATE [Concomitant]
  16. LAMOTRIGINE [Concomitant]
  17. OXYCONTIN [Concomitant]
     Dosage: 20 MG, 3/D
  18. PREDNISONE [Concomitant]
  19. ACYCLOVIR [Concomitant]
  20. ADDERALL 10 [Concomitant]
  21. RELAFEN [Concomitant]
  22. REMICADE [Concomitant]
     Dosage: UNK, EVERY 8 WEEKS
  23. OXYCONTIN [Concomitant]
     Dosage: 40 MG, 3/D
  24. SIMVASTATIN [Concomitant]
  25. NITROFURANTOIN [Concomitant]
  26. LOTEMAX [Concomitant]
  27. FOLIC ACID [Concomitant]
  28. ZOLPIDEM [Concomitant]
  29. METAMUCIL-2 [Concomitant]
  30. POLYETHYLENE GLYCOL [Concomitant]

REACTIONS (9)
  - PELVIC FRACTURE [None]
  - PAIN [None]
  - COGNITIVE DISORDER [None]
  - TRANSIENT ISCHAEMIC ATTACK [None]
  - EXPIRED DRUG ADMINISTERED [None]
  - DELUSION [None]
  - DELIRIUM [None]
  - ANXIETY [None]
  - DEATH [None]
